FAERS Safety Report 20135338 (Version 2)
Quarter: 2022Q1

REPORT INFORMATION
  Report Type: Spontaneous
  Country: US (occurrence: US)
  Receive Date: 20211201
  Receipt Date: 20220105
  Transmission Date: 20220423
  Serious: No
  Sender: FDA-Public Use
  Company Number: US-AIMMUNE THERAPEUTICS, INC.-2021AIMT00734

PATIENT

DRUGS (9)
  1. PALFORZIA [Suspect]
     Active Substance: PEANUT
     Indication: Food allergy
     Dosage: 3 MG, 1X/DAY
     Route: 048
     Dates: start: 20211029, end: 20211031
  2. PALFORZIA [Suspect]
     Active Substance: PEANUT
     Dosage: 3 MG, ONCE, LAST DOSE PRIOR COUGHING
     Route: 048
     Dates: start: 20211031, end: 20211031
  3. PALFORZIA [Suspect]
     Active Substance: PEANUT
     Dosage: 2 MG, 1X/DAY, REDUCED DOSE
     Route: 048
     Dates: start: 20211101, end: 20211110
  4. PALFORZIA [Suspect]
     Active Substance: PEANUT
     Dosage: 3 MG, 1X/DAY, INCREASED DOSE
     Route: 048
     Dates: start: 20211111, end: 20211122
  5. PALFORZIA [Suspect]
     Active Substance: PEANUT
     Dosage: 3 MG, ONCE, LAST DOSE PRIOR GI UPSET AND EMESIS
     Route: 048
     Dates: start: 20211122, end: 20211122
  6. PALFORZIA [Suspect]
     Active Substance: PEANUT
     Dosage: 3 MG, 1X/DAY, RE-STARTED
     Route: 048
     Dates: start: 20211206, end: 20211219
  7. PALFORZIA [Suspect]
     Active Substance: PEANUT
     Dosage: 3 MG, ONCE, LAST DOSE PRIOR LOW-GRADE FEVER/POSSIBLE VIRAL INFECTION
     Route: 048
     Dates: start: 20211219, end: 20211219
  8. PALFORZIA [Suspect]
     Active Substance: PEANUT
     Dosage: 3 MG, 1X/DAY, RE-STARTED
     Route: 048
     Dates: start: 20211221
  9. QVAR [Concomitant]
     Active Substance: BECLOMETHASONE DIPROPIONATE
     Indication: Asthma

REACTIONS (5)
  - Viral infection [Recovered/Resolved]
  - Pyrexia [Recovered/Resolved]
  - Cough [Recovered/Resolved]
  - Abdominal discomfort [Recovered/Resolved]
  - Vomiting [Recovered/Resolved]

NARRATIVE: CASE EVENT DATE: 20211031
